FAERS Safety Report 7055368-7 (Version None)
Quarter: 2010Q4

REPORT INFORMATION
  Report Type: 
  Country: None (occurrence: None)
  Receive Date: 20101021
  Receipt Date: 20101007
  Transmission Date: 20110411
  Serious: Yes (Hospitalization, Other)
  Sender: FDA-Public Use
  Company Number: PHHY2010DE67578

PATIENT
  Sex: Male
  Weight: 72 kg

DRUGS (11)
  1. CYCLOSPORINE [Suspect]
     Dosage: 100-150 LEVEL DEPENDENT
     Route: 042
     Dates: start: 20100324, end: 20100627
  2. VFEND [Suspect]
     Indication: ANTIFUNGAL PROPHYLAXIS
     Dosage: 400 MG DAILY, 1XPER DAY
     Route: 048
     Dates: start: 20100319, end: 20100613
  3. METHYLPREDNISOLONE [Suspect]
     Indication: GRAFT VERSUS HOST DISEASE
     Dosage: 45 MG-0-15 MG
     Route: 048
     Dates: start: 20100424
  4. FLUCONAZOLE [Suspect]
     Indication: ANTIFUNGAL PROPHYLAXIS
     Dosage: 400 MG DAILY
     Dates: start: 20100319, end: 20100613
  5. MYCOPHENOLATE MOFETIL [Concomitant]
  6. ACICLOVIR [Concomitant]
  7. PENTACARINAT [Concomitant]
  8. INSULIN [Concomitant]
  9. TORASEMIDE [Concomitant]
  10. KALINOR-BRAUSETABLETTEN [Concomitant]
  11. CASPOFUNGIN ACETATE [Concomitant]

REACTIONS (30)
  - ABDOMINAL PAIN [None]
  - ACUTE GRAFT VERSUS HOST DISEASE IN LIVER [None]
  - ALANINE AMINOTRANSFERASE INCREASED [None]
  - APLASIA [None]
  - ASPARTATE AMINOTRANSFERASE INCREASED [None]
  - BLOOD BILIRUBIN INCREASED [None]
  - BLOOD LACTATE DEHYDROGENASE INCREASED [None]
  - CHRONIC GRAFT VERSUS HOST DISEASE [None]
  - DIABETES MELLITUS [None]
  - DISORIENTATION [None]
  - DISTURBANCE IN ATTENTION [None]
  - EOSINOPHIL COUNT DECREASED [None]
  - EOSINOPHIL PERCENTAGE DECREASED [None]
  - EPSTEIN-BARR VIRUS INFECTION [None]
  - GAMMA-GLUTAMYLTRANSFERASE INCREASED [None]
  - HAEMATOCRIT DECREASED [None]
  - HAEMOGLOBIN DECREASED [None]
  - LUNG INFILTRATION [None]
  - LYMPHOCYTE COUNT DECREASED [None]
  - LYMPHOCYTE PERCENTAGE DECREASED [None]
  - MENTAL DISORDER DUE TO A GENERAL MEDICAL CONDITION [None]
  - MUCOSAL INFLAMMATION [None]
  - MYOPATHY [None]
  - NAUSEA [None]
  - NUCLEAR MAGNETIC RESONANCE IMAGING BRAIN ABNORMAL [None]
  - PITUITARY-DEPENDENT CUSHING'S SYNDROME [None]
  - PLATELET COUNT DECREASED [None]
  - PYREXIA [None]
  - RED BLOOD CELL COUNT DECREASED [None]
  - WHITE BLOOD CELL COUNT DECREASED [None]
